FAERS Safety Report 22274485 (Version 1)
Quarter: 2023Q2

REPORT INFORMATION
  Report Type: Report from Study
  Country: US (occurrence: US)
  Receive Date: 20230502
  Receipt Date: 20230502
  Transmission Date: 20230721
  Serious: No
  Sender: FDA-Public Use
  Company Number: US-002147023-NVSC2023US099401

PATIENT
  Sex: Female

DRUGS (12)
  1. COSENTYX [Suspect]
     Active Substance: SECUKINUMAB
     Indication: Ankylosing spondylitis
     Dosage: UNK
     Route: 065
  2. METHOTREXATE [Suspect]
     Active Substance: METHOTREXATE
     Indication: Ankylosing spondylitis
     Dosage: UNK
     Route: 065
  3. PHENTERMINE [Suspect]
     Active Substance: PHENTERMINE
     Indication: Ankylosing spondylitis
     Dosage: 37.5 MG, QD
     Route: 048
  4. FLUOXETINE [Suspect]
     Active Substance: FLUOXETINE HYDROCHLORIDE
     Indication: Ankylosing spondylitis
     Dosage: 20 MG, QD
     Route: 048
  5. FAMOTIDINE [Suspect]
     Active Substance: FAMOTIDINE
     Indication: Ankylosing spondylitis
     Dosage: 20 MG, QD
     Route: 048
  6. DOXYCYCLINE [Suspect]
     Active Substance: DOXYCYCLINE
     Indication: Ankylosing spondylitis
     Dosage: 100 MG, BID
     Route: 048
  7. CELECOXIB [Suspect]
     Active Substance: CELECOXIB
     Indication: Ankylosing spondylitis
     Dosage: 100 MG, TID
     Route: 065
  8. CYCLOBENZAPRINE [Suspect]
     Active Substance: CYCLOBENZAPRINE
     Indication: Ankylosing spondylitis
     Dosage: 5 MG (AS NEEDED)
     Route: 048
  9. ERGOCALCIFEROL [Suspect]
     Active Substance: ERGOCALCIFEROL
     Indication: Ankylosing spondylitis
     Dosage: 2000 IU, QD
     Route: 048
  10. FLUCONAZOLE [Suspect]
     Active Substance: FLUCONAZOLE
     Indication: Ankylosing spondylitis
     Dosage: UNK
     Route: 065
  11. MODAFINIL [Suspect]
     Active Substance: MODAFINIL
     Indication: Ankylosing spondylitis
     Dosage: 100 MG, QD
     Route: 048
  12. PARAFFIN [Suspect]
     Active Substance: PARAFFIN
     Indication: Ankylosing spondylitis
     Dosage: UNK
     Route: 065

REACTIONS (1)
  - Drug ineffective [Unknown]
